FAERS Safety Report 21144333 (Version 1)
Quarter: 2022Q3

REPORT INFORMATION
  Report Type: Spontaneous
  Country: BR (occurrence: BR)
  Receive Date: 20220728
  Receipt Date: 20220728
  Transmission Date: 20221027
  Serious: Yes (Life-Threatening, Hospitalization, Other)
  Sender: FDA-Public Use
  Company Number: BR-MLMSERVICE-20220714-3675711-1

PATIENT
  Age: 27 Year
  Sex: Female

DRUGS (1)
  1. GEMCITABINE HYDROCHLORIDE [Suspect]
     Active Substance: GEMCITABINE HYDROCHLORIDE
     Indication: T-cell lymphoma
     Dosage: UNK, UNKNOWN
     Route: 065

REACTIONS (2)
  - Non-cardiogenic pulmonary oedema [Recovering/Resolving]
  - Acute respiratory failure [Recovering/Resolving]
